FAERS Safety Report 17677280 (Version 2)
Quarter: 2020Q2

REPORT INFORMATION
  Report Type: Spontaneous
  Country: US (occurrence: US)
  Receive Date: 20200416
  Receipt Date: 20200429
  Transmission Date: 20200714
  Serious: Yes (Death, Hospitalization)
  Sender: FDA-Public Use
  Company Number: US-ACTELION-A-NJ2020-204121

PATIENT
  Age: 5 Year
  Sex: Male

DRUGS (26)
  1. FAMOTIDINE. [Concomitant]
     Active Substance: FAMOTIDINE
     Dosage: 8 MG (J-TUBE), QD
  2. LEVETIRACETAM. [Concomitant]
     Active Substance: LEVETIRACETAM
     Dosage: 180 MG (J-TUBE), Q12HRS
  3. BUDESONIDE. [Concomitant]
     Active Substance: BUDESONIDE
     Dosage: 0.25 MG, BID
  4. POTASSIUM CHLORIDE. [Concomitant]
     Active Substance: POTASSIUM CHLORIDE
     Dosage: 15 MEQ, Q2HRSPRN
     Route: 042
  5. ALBUTEROL. [Concomitant]
     Active Substance: ALBUTEROL
     Indication: WHEEZING
     Dosage: 2.5 MG, Q4H PRN
  6. OXYGEN. [Concomitant]
     Active Substance: OXYGEN
     Route: 045
  7. OMEPRAZOLE. [Concomitant]
     Active Substance: OMEPRAZOLE
     Dosage: 18 MG
  8. VANCOMYCIN [Concomitant]
     Active Substance: VANCOMYCIN
     Dosage: 175 MG, Q18HRS
     Route: 042
  9. LORAZEPAM. [Concomitant]
     Active Substance: LORAZEPAM
     Indication: AGITATION
     Dosage: 1.8 MG, Q4HRS PRN
  10. ACETAMINOPHEN. [Concomitant]
     Active Substance: ACETAMINOPHEN
     Indication: PAIN
     Dosage: 240 MG, Q6HRS PRN
     Route: 048
  11. ASPIRIN. [Concomitant]
     Active Substance: ASPIRIN
  12. TRACLEER [Suspect]
     Active Substance: BOSENTAN
     Indication: PRODUCT USED FOR UNKNOWN INDICATION
     Dosage: 32 MG, BID
     Route: 048
     Dates: start: 20190809, end: 20200402
  13. SODIUM CHLORIDE. [Concomitant]
     Active Substance: SODIUM CHLORIDE
     Dosage: 16 MEQ, BID
  14. SILDENAFIL. [Concomitant]
     Active Substance: SILDENAFIL
     Dosage: 20 MG (NJ-TUBE), Q8H
  15. KEPPRA [Concomitant]
     Active Substance: LEVETIRACETAM
  16. CHOLECALCIFEROL [Concomitant]
     Active Substance: CHOLECALCIFEROL
     Dosage: 1000 U (J-TUBE), QD
  17. OCULAR LUBRICANT [Concomitant]
     Dosage: 1 APPLICATION BOTH EYES, Q4HRS
  18. METHYLPREDNISOLONE. [Concomitant]
     Active Substance: METHYLPREDNISOLONE
     Dosage: 5 MG, QID
     Route: 042
  19. ACETAMINOPHEN. [Concomitant]
     Active Substance: ACETAMINOPHEN
     Indication: PYREXIA
  20. CEFEPIME [Concomitant]
     Active Substance: CEFEPIME HYDROCHLORIDE
     Dosage: 875 MG, QID
     Route: 042
  21. FUROSEMIDE. [Concomitant]
     Active Substance: FUROSEMIDE
     Dosage: 18 MG, Q12HRS
     Route: 042
  22. NITRIC OXIDE. [Concomitant]
     Active Substance: NITRIC OXIDE
  23. LOVENOX [Concomitant]
     Active Substance: ENOXAPARIN SODIUM
  24. LASIX [Concomitant]
     Active Substance: FUROSEMIDE
     Dosage: 18 MG, BID
  25. FLUCONAZOLE. [Concomitant]
     Active Substance: FLUCONAZOLE
     Dosage: 105 MG, QD
     Route: 042
  26. ALTEPLASE. [Concomitant]
     Active Substance: ALTEPLASE
     Indication: DEVICE OCCLUSION
     Dosage: 1 MG, PRN
     Route: 042

REACTIONS (58)
  - Drug intolerance [Unknown]
  - Gastrointestinal haemorrhage [Unknown]
  - Unresponsive to stimuli [Unknown]
  - Bradypnoea [Unknown]
  - Generalised oedema [Unknown]
  - Dyspnoea [Unknown]
  - Pseudomonas test positive [Unknown]
  - Cerebrovascular accident [Unknown]
  - Encephalomalacia [Unknown]
  - Nervous system disorder [Unknown]
  - Hyporeflexia [Unknown]
  - Feeling cold [Unknown]
  - Anion gap decreased [Unknown]
  - Hypertension [Unknown]
  - Multiple organ dysfunction syndrome [Fatal]
  - Pupil fixed [Unknown]
  - Central nervous system lesion [Unknown]
  - Renal injury [Unknown]
  - Pulmonary haemorrhage [Unknown]
  - Respiratory failure [Unknown]
  - Cough [Unknown]
  - Rhinovirus infection [Unknown]
  - Intracranial mass [Unknown]
  - Transfusion [Unknown]
  - Fluid overload [Unknown]
  - Platelet transfusion [Unknown]
  - Platelet count decreased [Unknown]
  - Lymphocyte count decreased [Unknown]
  - Gastrointestinal sounds abnormal [Unknown]
  - Ischaemic stroke [Fatal]
  - Oxygen saturation decreased [Fatal]
  - Klebsiella test positive [Unknown]
  - Subdural haemorrhage [Unknown]
  - Decerebrate posture [Unknown]
  - Thrombocytopenia [Unknown]
  - Blood calcium decreased [Unknown]
  - Hypotension [Fatal]
  - Enterobacter test positive [Unknown]
  - Brain herniation [Unknown]
  - Nystagmus [Unknown]
  - Cardiac failure [Fatal]
  - Human metapneumovirus test positive [Unknown]
  - Sepsis [Unknown]
  - Carotid artery dissection [Unknown]
  - Haemorrhage intracranial [Unknown]
  - Cerebral vasodilatation [Unknown]
  - Hydrocephalus [Unknown]
  - Neurogenic bladder [Unknown]
  - Mean cell haemoglobin concentration decreased [Unknown]
  - Cardiac murmur [Unknown]
  - Cerebral haematoma [Unknown]
  - Pyrexia [Unknown]
  - Somnolence [Unknown]
  - Cerebellar haemorrhage [Unknown]
  - Collateral circulation [Unknown]
  - Vasogenic cerebral oedema [Unknown]
  - Cyanosis [Unknown]
  - Macrocephaly [Unknown]

NARRATIVE: CASE EVENT DATE: 20200228
